FAERS Safety Report 6740106-5 (Version None)
Quarter: 2010Q2

REPORT INFORMATION
  Report Type: 
  Country: None (occurrence: None)
  Receive Date: 20100525
  Receipt Date: 20100519
  Transmission Date: 20101027
  Serious: Yes (Other)
  Sender: FDA-Public Use
  Company Number: US-PERRIGO-10US009822

PATIENT

DRUGS (1)
  1. DIPHENHYDRAMINE HYDROCHLORIDE 25 MG 479 [Suspect]
     Indication: INTENTIONAL OVERDOSE
     Dosage: 2500 MG, SINGLE
     Route: 048
     Dates: start: 20100519, end: 20100519

REACTIONS (1)
  - INTENTIONAL OVERDOSE [None]
